FAERS Safety Report 12489369 (Version 2)
Quarter: 2019Q2

REPORT INFORMATION
  Report Type: Spontaneous
  Country: IT (occurrence: IT)
  Receive Date: 20160622
  Receipt Date: 20190418
  Transmission Date: 20190711
  Serious: Yes (Other)
  Sender: FDA-Public Use
  Company Number: IT-SA-2015SA172959

PATIENT
  Age: 50 Year
  Sex: Female

DRUGS (2)
  1. PLERIXAFOR [Suspect]
     Active Substance: PLERIXAFOR
     Indication: HAEMATOPOIETIC STEM CELL MOBILISATION
     Dosage: .24 MG/KG,UNK
     Route: 065
  2. LENOGRASTIM [Suspect]
     Active Substance: LENOGRASTIM
     Indication: HAEMATOPOIETIC STEM CELL MOBILISATION
     Dosage: 5 MG/KG,BID
     Route: 065

REACTIONS (7)
  - Hypotension [Recovered/Resolved]
  - Abdominal pain lower [Recovered/Resolved]
  - Tachycardia [Recovered/Resolved]
  - Splenic rupture [Recovered/Resolved]
  - Haemoglobin decreased [Unknown]
  - Oliguria [Recovered/Resolved]
  - Nausea [Recovered/Resolved]
